FAERS Safety Report 8621157-2 (Version None)
Quarter: 2012Q3

REPORT INFORMATION
  Report Type: 
  Country: None (occurrence: None)
  Receive Date: 20120824
  Receipt Date: 20120817
  Transmission Date: 20120928
  Serious: Yes (Hospitalization)
  Sender: FDA-Public Use
  Company Number: JP-ROCHE-1048167

PATIENT
  Sex: Female

DRUGS (7)
  1. ROACTEMRA [Suspect]
     Route: 041
     Dates: start: 20110311, end: 20110311
  2. ISONIAZID [Concomitant]
     Indication: ANTIBIOTIC PROPHYLAXIS
     Route: 048
     Dates: start: 20080730
  3. CELEBREX [Concomitant]
     Indication: RHEUMATOID ARTHRITIS
     Route: 048
     Dates: end: 20090116
  4. METHOTREXATE [Concomitant]
     Indication: RHEUMATOID ARTHRITIS
     Route: 048
  5. ROACTEMRA [Suspect]
     Indication: RHEUMATOID ARTHRITIS
     Route: 041
     Dates: start: 20080801, end: 20090724
  6. ROACTEMRA [Suspect]
     Route: 041
     Dates: start: 20110701
  7. ROACTEMRA [Suspect]
     Route: 041
     Dates: start: 20090828, end: 20101217

REACTIONS (1)
  - AORTIC DISSECTION [None]
